FAERS Safety Report 21267890 (Version 1)
Quarter: 2022Q3

REPORT INFORMATION
  Report Type: Spontaneous
  Country: CA (occurrence: CA)
  Receive Date: 20220829
  Receipt Date: 20220829
  Transmission Date: 20221027
  Serious: Yes (Hospitalization, Other)
  Sender: FDA-Public Use
  Company Number: CA-SA-SAC20220827000226

PATIENT
  Age: 57 Year
  Sex: Female

DRUGS (13)
  1. DUPIXENT [Suspect]
     Active Substance: DUPILUMAB
     Indication: Dermatitis atopic
     Dosage: 600 MG, 1X
     Route: 058
  2. DUPIXENT [Suspect]
     Active Substance: DUPILUMAB
     Dosage: 300 MG, QOW
     Route: 058
  3. COVID-19 VACCINE NOS [Suspect]
     Active Substance: COVID-19 VACCINE NOS
     Indication: COVID-19 immunisation
     Dosage: UNK, 1X
     Route: 030
  4. ADVAIR HFA [Concomitant]
     Active Substance: FLUTICASONE PROPIONATE\SALMETEROL XINAFOATE
     Indication: Asthma
     Dosage: 1 DF, QD
     Route: 055
  5. BENADRYL [Concomitant]
     Active Substance: DIPHENHYDRAMINE HYDROCHLORIDE
     Indication: Dermatitis atopic
     Dosage: 1 DF, QD
     Route: 048
  6. CANDESARTAN [Concomitant]
     Active Substance: CANDESARTAN
     Indication: Hypertension
     Dosage: 32 MG, QD
     Route: 048
  7. DOXEPIN HYDROCHLORIDE [Concomitant]
     Active Substance: DOXEPIN HYDROCHLORIDE
  8. METHOTREXATE [Concomitant]
     Active Substance: METHOTREXATE
     Dosage: UNK
  9. PREDNISONE [Concomitant]
     Active Substance: PREDNISONE
     Dosage: UNK
  10. ROSUVASTATIN CALCIUM [Concomitant]
     Active Substance: ROSUVASTATIN CALCIUM
     Indication: Blood cholesterol abnormal
     Dosage: UNK
  11. CYCLOSPORINE [Concomitant]
     Active Substance: CYCLOSPORINE
     Dosage: UNK
  12. FLUOCINONIDE [Concomitant]
     Active Substance: FLUOCINONIDE
     Dosage: UNK
  13. ALBUTEROL [Concomitant]
     Active Substance: ALBUTEROL
     Dosage: 1 DF, QD
     Route: 055

REACTIONS (5)
  - Brain stem stroke [Not Recovered/Not Resolved]
  - Cerebellar stroke [Not Recovered/Not Resolved]
  - Dizziness [Not Recovered/Not Resolved]
  - Scar [Not Recovered/Not Resolved]
  - Hospitalisation [Not Recovered/Not Resolved]
